FAERS Safety Report 9436672 (Version 2)
Quarter: 2018Q3

REPORT INFORMATION
  Report Type: Spontaneous
  Country: JP (occurrence: JP)
  Receive Date: 20130802
  Receipt Date: 20180705
  Transmission Date: 20181010
  Serious: Yes (Other)
  Sender: FDA-Public Use
  Company Number: JP-BAYER-2013-090681

PATIENT
  Age: 32 Year
  Sex: Female

DRUGS (4)
  1. YAZ [Suspect]
     Active Substance: DROSPIRENONE\ETHINYL ESTRADIOL
     Route: 048
  2. ROHYPNOL [Interacting]
     Active Substance: FLUNITRAZEPAM
     Dosage: UNK
     Route: 048
  3. VEGETAMIN A [Interacting]
     Active Substance: CHLORPROMAZINE HYDROCHLORIDE\PHENOBARBITAL\PROMETHAZINE
     Dosage: UNK
     Route: 048
  4. LEXOTAN [Interacting]
     Active Substance: BROMAZEPAM
     Route: 048

REACTIONS (4)
  - Coma [Unknown]
  - Suicide attempt [Unknown]
  - Intentional overdose [None]
  - Labelled drug-drug interaction medication error [None]

NARRATIVE: CASE EVENT DATE: 201307
